FAERS Safety Report 7053378-7 (Version None)
Quarter: 2010Q4

REPORT INFORMATION
  Report Type: 
  Country: None (occurrence: None)
  Receive Date: 20101020
  Receipt Date: 20100729
  Transmission Date: 20110411
  Serious: No
  Sender: FDA-Public Use
  Company Number: US-MYLANLABS-2010S1014016

PATIENT
  Age: 62 Year
  Sex: Female
  Weight: 76.2 kg

DRUGS (16)
  1. LAMOTRIGINE [Suspect]
     Indication: BIPOLAR DISORDER
     Route: 048
     Dates: start: 20090930, end: 20091201
  2. LITHIUM [Concomitant]
     Indication: BIPOLAR DISORDER
  3. PREVACID [Concomitant]
     Indication: GASTROOESOPHAGEAL REFLUX DISEASE
  4. SYNTHROID [Concomitant]
     Indication: HYPOTHYROIDISM
  5. NEURONTIN [Concomitant]
     Indication: ANXIETY
  6. XANAX [Concomitant]
     Indication: ANXIETY
  7. FISH OIL [Concomitant]
     Dates: start: 20090101
  8. TRICOR [Concomitant]
     Indication: BLOOD TRIGLYCERIDES
     Dates: start: 20080101
  9. VERAMYST [Concomitant]
     Indication: RHINITIS
     Route: 045
     Dates: start: 20090101
  10. COMBIVENT [Concomitant]
     Indication: ASTHMA
     Dosage: 8 PUFFS/DAY
     Route: 055
  11. QVAR 40 [Concomitant]
     Indication: ASTHMA
     Dosage: 4 PUFFS/DAY
     Route: 055
  12. AXID [Concomitant]
     Indication: GASTROOESOPHAGEAL REFLUX DISEASE
  13. AMBIEN CR [Concomitant]
     Indication: INSOMNIA
  14. FIORICET [Concomitant]
     Indication: HEADACHE
  15. VICODIN [Concomitant]
     Indication: ARTHRITIS
     Dosage: 5MG/325MG
  16. HYOSCYAMINE [Concomitant]
     Indication: NAUSEA

REACTIONS (1)
  - HALLUCINATION, AUDITORY [None]
